FAERS Safety Report 8654630 (Version 2)
Quarter: 2012Q4

REPORT INFORMATION
  Report Type: 
  Country: US (occurrence: US)
  Receive Date: 20120709
  Receipt Date: 20121002
  Transmission Date: 20130627
  Serious: No
  Sender: FDA-Public Use
  Company Number: US-PFIZER INC-2012162719

PATIENT
  Age: 50 Year
  Sex: Female
  Weight: 63.49 kg

DRUGS (13)
  1. CHANTIX [Suspect]
     Indication: SMOKING CESSATION THERAPY
     Dosage: UNK
     Route: 048
     Dates: start: 201206, end: 2012
  2. CHANTIX [Suspect]
     Dosage: 1 mg, 2x/day
     Route: 048
     Dates: start: 2012
  3. PHENERGAN [Concomitant]
     Indication: NAUSEA
     Dosage: 25 mg, as needed
     Dates: start: 1992
  4. ULTRAM [Concomitant]
     Indication: MIGRAINE
     Dosage: 50 mg, UNK
     Dates: start: 2002
  5. MOBIC [Concomitant]
     Indication: ARTHRITIS
     Dosage: 7.5 mg, 2x/day
     Dates: start: 2007
  6. MAXALT [Concomitant]
     Indication: MIGRAINE
     Dosage: 5 mg, as needed
     Dates: start: 2009
  7. PRILOSEC [Concomitant]
     Indication: GASTRIC DISORDER
     Dosage: 20 mg, 2x/day
  8. ABILIFY [Concomitant]
     Indication: DEPRESSION
     Dosage: 5 mg, daily
  9. CYMBALTA [Concomitant]
     Indication: DEPRESSION
     Dosage: 90 mg, daily
  10. SYNTHROID [Concomitant]
     Indication: HYPOTHYROIDISM
     Dosage: 125 ug, UNK
  11. FEOSOL [Concomitant]
     Indication: ANAEMIA
     Dosage: 325 mg, daily
  12. LOMOTIL [Concomitant]
     Indication: DIARRHOEA
     Dosage: UNK, as needed
  13. FLONASE [Concomitant]
     Indication: SEASONAL ALLERGY
     Dosage: UNK, as needed

REACTIONS (1)
  - Drug ineffective [Unknown]
